FAERS Safety Report 20249881 (Version 1)
Quarter: 2021Q4

REPORT INFORMATION
  Report Type: Spontaneous
  Country: US (occurrence: US)
  Receive Date: 20211229
  Receipt Date: 20211229
  Transmission Date: 20220304
  Serious: No
  Sender: FDA-Public Use
  Company Number: US-PURDUE-USA-2020-0215898

PATIENT
  Sex: Male

DRUGS (1)
  1. OXYCODONE HYDROCHLORIDE [Suspect]
     Active Substance: OXYCODONE HYDROCHLORIDE
     Indication: Product used for unknown indication
     Dosage: 8 UNIT, DAILY
     Route: 048

REACTIONS (3)
  - Drug withdrawal syndrome [Unknown]
  - Limb injury [Unknown]
  - Aggression [Unknown]
